FAERS Safety Report 8974789 (Version 1)
Quarter: 2012Q4

REPORT INFORMATION
  Report Type: Spontaneous
  Country: US (occurrence: None)
  Receive Date: 20121211
  Receipt Date: 20121211
  Transmission Date: 20130627
  Serious: Yes (Other)
  Sender: FDA-Public Use
  Company Number: 2012-21544

PATIENT
  Age: 57 Year
  Sex: Female

DRUGS (6)
  1. TAMOXIFEN CITRATE [Suspect]
     Indication: BREAST CANCER STAGE II
  2. LETROZOLE [Suspect]
  3. DOXORUBICIN (DOXORUBICIN) (DOXORUBICIN) [Suspect]
  4. CYCLOPHOSPHAMIDE (CYCLOPHOSPHAMIDE) [Concomitant]
  5. METHOTREXATE (METHOTREXATE) [Concomitant]
  6. FLUOROURCAIL (FLUOROURACIL) [Concomitant]

REACTIONS (2)
  - Cardiomyopathy [None]
  - Cardiac failure [None]
